FAERS Safety Report 16458710 (Version 1)
Quarter: 2019Q2

REPORT INFORMATION
  Report Type: Spontaneous
  Country: US (occurrence: US)
  Receive Date: 20190620
  Receipt Date: 20190620
  Transmission Date: 20190711
  Serious: No
  Sender: FDA-Public Use
  Company Number: US-THERAPEUTICSMD-2019TMD00545

PATIENT
  Age: 68 Year
  Sex: Female
  Weight: 68.03 kg

DRUGS (3)
  1. PROGESTERONE-ESTROGEN [Concomitant]
  2. IMVEXXY [Suspect]
     Active Substance: ESTRADIOL
     Dosage: 4 ?G, 1X/WEEK
     Route: 067
     Dates: end: 2019
  3. IMVEXXY [Suspect]
     Active Substance: ESTRADIOL
     Indication: VULVOVAGINAL DRYNESS
     Dosage: 4 ?G, 2X/WEEK
     Route: 067
     Dates: start: 20181129

REACTIONS (4)
  - Product residue present [Recovered/Resolved]
  - Off label use [Recovered/Resolved]
  - Vulvovaginal ulceration [Recovering/Resolving]
  - Vulvovaginal discomfort [Not Recovered/Not Resolved]

NARRATIVE: CASE EVENT DATE: 201811
